FAERS Safety Report 5757747-4 (Version None)
Quarter: 2008Q2

REPORT INFORMATION
  Report Type: 
  Country: None (occurrence: None)
  Receive Date: 20080529
  Receipt Date: 20080513
  Transmission Date: 20081010
  Serious: Yes (Other)
  Sender: FDA-Public Use
  Company Number: 2006EU000196

PATIENT
  Age: 5 Year
  Sex: Female

DRUGS (2)
  1. PROTOPIC [Suspect]
     Indication: GRAFT VERSUS HOST DISEASE
     Dosage: 0.01 %, /D, TOPICAL
     Route: 061
     Dates: start: 20060101
  2. PREDNISOLONE [Concomitant]

REACTIONS (4)
  - ANAEMIA [None]
  - MICROANGIOPATHIC HAEMOLYTIC ANAEMIA [None]
  - SERUM FERRITIN DECREASED [None]
  - THROMBOTIC MICROANGIOPATHY [None]
